FAERS Safety Report 5517308-9 (Version None)
Quarter: 2007Q4

REPORT INFORMATION
  Report Type: 
  Country: None (occurrence: None)
  Receive Date: 20071114
  Receipt Date: 20071011
  Transmission Date: 20080405
  Serious: No
  Sender: FDA-Public Use
  Company Number: A0687100A

PATIENT
  Age: 45 Year
  Sex: Male

DRUGS (1)
  1. COMMIT [Suspect]

REACTIONS (5)
  - CHEILITIS [None]
  - GINGIVAL SWELLING [None]
  - GINGIVITIS [None]
  - LIP SWELLING [None]
  - TOOTH INFECTION [None]
